FAERS Safety Report 8295072-0 (Version None)
Quarter: 2012Q2

REPORT INFORMATION
  Report Type: 
  Country: None (occurrence: None)
  Receive Date: 20120416
  Receipt Date: 20120412
  Transmission Date: 20120825
  Serious: Yes (Death)
  Sender: FDA-Public Use
  Company Number: ADR-2010-8057

PATIENT
  Age: 13 Year
  Sex: Male

DRUGS (1)
  1. LIORESAL [Suspect]
     Indication: MUSCLE SPASTICITY
     Dosage: 289.9MCG, DAILY, INTRA
     Route: 037

REACTIONS (3)
  - UNRESPONSIVE TO STIMULI [None]
  - RESPIRATORY ARREST [None]
  - CHOKING [None]
